FAERS Safety Report 13291436 (Version 1)
Quarter: 2017Q1

REPORT INFORMATION
  Report Type: Spontaneous
  Country: US (occurrence: US)
  Receive Date: 20170302
  Receipt Date: 20170302
  Transmission Date: 20170428
  Serious: Yes (Life-Threatening, Other)
  Sender: FDA-Public Use
  Company Number: None

PATIENT
  Age: 40 Year
  Sex: Male
  Weight: 87.75 kg

DRUGS (1)
  1. ULORIC [Suspect]
     Active Substance: FEBUXOSTAT
     Indication: GOUT
     Dosage: ?          QUANTITY:7 CAPSULE(S);?
     Route: 048

REACTIONS (4)
  - Affective disorder [None]
  - Depression [None]
  - Peripheral swelling [None]
  - Blood pressure increased [None]

NARRATIVE: CASE EVENT DATE: 20170225
